FAERS Safety Report 7658101-0 (Version None)
Quarter: 2011Q3

REPORT INFORMATION
  Report Type: 
  Country: None (occurrence: None)
  Receive Date: 20110802
  Receipt Date: 20110722
  Transmission Date: 20111222
  Serious: Yes (Hospitalization)
  Sender: FDA-Public Use
  Company Number: 2011001790

PATIENT
  Age: 83 Year
  Sex: Female

DRUGS (14)
  1. TARCEVA [Suspect]
     Indication: LUNG ADENOCARCINOMA
     Dosage: 100 MG, UID/QD, ORAL
     Route: 048
     Dates: start: 20110221, end: 20110409
  2. LECICARBON (SODIUM PHOSPHATE MONOBASIC (ANHYDRATE)) [Concomitant]
  3. VFEND [Suspect]
     Indication: ASPERGILLOSIS
     Dosage: 200 MG, UID/QD, ORAL
     Route: 048
     Dates: start: 20110405, end: 20110406
  4. CONIEL (BENIDIPINE HYDROCHLORIDE) [Concomitant]
  5. PURSENNID (SENNA ALEXANDRINA LEAF) [Concomitant]
  6. NAPROXEN SODIUM [Suspect]
     Indication: PRODUCT USED FOR UNKNOWN INDICATION
     Dosage: 100 MG, BID, ORAL
     Route: 048
     Dates: start: 20110405, end: 20110408
  7. LYRICA [Concomitant]
  8. PROMAX (VALPROATE MAGNESIUM) [Concomitant]
  9. MYSLEE (ZOLPIDEM) [Concomitant]
  10. LOXONIN (LOXOPROFEN SODIUM) [Concomitant]
  11. CIPROFLOXACIN HCL [Concomitant]
  12. TARGOCID [Suspect]
     Indication: PNEUMONIA BACTERIAL
     Dosage: 200 MG, UID/QD,IV DRIP
     Route: 041
     Dates: start: 20110406, end: 20110406
  13. ACETAMINOPHEN [Concomitant]
  14. NEUROTROPIN (SMALLPOX VACCINE) [Concomitant]

REACTIONS (3)
  - ANAEMIA [None]
  - TUMOUR ASSOCIATED FEVER [None]
  - RHABDOMYOLYSIS [None]
